FAERS Safety Report 13802332 (Version 1)
Quarter: 2017Q3

REPORT INFORMATION
  Report Type: Report from Study
  Country: US (occurrence: US)
  Receive Date: 20170727
  Receipt Date: 20170727
  Transmission Date: 20171127
  Serious: Yes (Hospitalization)
  Sender: FDA-Public Use
  Company Number: US-EXELIXIS-CABO-17009666

PATIENT
  Age: 64 Year
  Sex: Male

DRUGS (16)
  1. LEVOTHYROXINE. [Concomitant]
     Active Substance: LEVOTHYROXINE
  2. ZOLPIDEM [Concomitant]
     Active Substance: ZOLPIDEM\ZOLPIDEM TARTRATE
  3. MOVANTIK [Concomitant]
     Active Substance: NALOXEGOL OXALATE
  4. FLUTICASONE. [Concomitant]
     Active Substance: FLUTICASONE
  5. LOTREL [Concomitant]
     Active Substance: AMLODIPINE BESYLATE\BENAZEPRIL HYDROCHLORIDE
  6. MORPHINE [Concomitant]
     Active Substance: MORPHINE
  7. BACLOFEN. [Concomitant]
     Active Substance: BACLOFEN
  8. COMETRIQ [Suspect]
     Active Substance: CABOZANTINIB S-MALATE
     Indication: THYROID CANCER
     Dosage: 60 MG, QD
     Route: 048
     Dates: start: 20170419, end: 20170705
  9. ZOFRAN [Concomitant]
     Active Substance: ONDANSETRON HYDROCHLORIDE
  10. PERCOCET [Concomitant]
     Active Substance: ACETAMINOPHEN\OXYCODONE HYDROCHLORIDE
  11. OXYCODONE [Concomitant]
     Active Substance: OXYCODONE
  12. TYLENOL [Concomitant]
     Active Substance: ACETAMINOPHEN
  13. CRESTOR [Concomitant]
     Active Substance: ROSUVASTATIN CALCIUM
  14. LACTULOSE. [Concomitant]
     Active Substance: LACTULOSE
  15. FENTANYL. [Concomitant]
     Active Substance: FENTANYL
  16. TEMAZEPAM. [Concomitant]
     Active Substance: TEMAZEPAM

REACTIONS (11)
  - Insomnia [Unknown]
  - Somnolence [Unknown]
  - Back pain [Unknown]
  - Headache [Unknown]
  - Hypophagia [Not Recovered/Not Resolved]
  - Constipation [Not Recovered/Not Resolved]
  - Asthenia [Recovering/Resolving]
  - Disorientation [Recovering/Resolving]
  - Blood pressure fluctuation [Unknown]
  - Weight decreased [Unknown]
  - Bone pain [Unknown]

NARRATIVE: CASE EVENT DATE: 201706
